FAERS Safety Report 4807748-5 (Version None)
Quarter: 2005Q4

REPORT INFORMATION
  Report Type: 
  Country: None (occurrence: None)
  Receive Date: 20051019
  Receipt Date: 20051003
  Transmission Date: 20060501
  Serious: Yes (Hospitalization, Disabling)
  Sender: FDA-Public Use
  Company Number: 310001M04DNK

PATIENT
  Sex: Female

DRUGS (5)
  1. GONAL-F [Suspect]
     Indication: IN VITRO FERTILISATION
     Dosage: 75 IU, 1 IN 1 DAYS,
     Dates: start: 20030923, end: 20030926
  2. GONAL-F [Suspect]
     Indication: INFERTILITY
     Dosage: 75 IU, 1 IN 1 DAYS,
     Dates: start: 20030923, end: 20030926
  3. BUSERELIN ACETATE [Concomitant]
  4. CHORIONIC GONADTROPIN [Concomitant]
  5. PROGESTERONE GEL (PROGESTERONE) [Concomitant]

REACTIONS (7)
  - BLOOD PRESSURE INCREASED [None]
  - CEREBRAL THROMBOSIS [None]
  - DRUG EXPOSURE DURING PREGNANCY [None]
  - GENE MUTATION IDENTIFICATION TEST POSITIVE [None]
  - HEMIANOPIA HOMONYMOUS [None]
  - ISCHAEMIC CEREBRAL INFARCTION [None]
  - PROTEIN S DECREASED [None]
